FAERS Safety Report 4352958-7 (Version None)
Quarter: 2004Q2

REPORT INFORMATION
  Report Type: 
  Country: None (occurrence: None)
  Receive Date: 20040429
  Receipt Date: 20040416
  Transmission Date: 20050107
  Serious: Yes (Death, Life-Threatening, Hospitalization, Other)
  Sender: FDA-Public Use
  Company Number: 2004023970

PATIENT
  Age: 35 Year
  Sex: Male

DRUGS (9)
  1. ZITHROMAX [Suspect]
     Indication: ACUTE RESPIRATORY DISTRESS SYNDROME
     Dosage: SEE IMAGE
     Route: 048
     Dates: start: 20040301, end: 20040301
  2. ZITHROMAX [Suspect]
     Indication: INTERSTITIAL LUNG DISEASE
     Dosage: SEE IMAGE
     Route: 048
     Dates: start: 20040301, end: 20040301
  3. ZITHROMAX [Suspect]
     Indication: VIRAL INFECTION
     Dosage: SEE IMAGE
     Route: 048
     Dates: start: 20040301, end: 20040301
  4. ZITHROMAX [Suspect]
     Indication: ACUTE RESPIRATORY DISTRESS SYNDROME
     Dosage: SEE IMAGE
     Route: 048
     Dates: start: 20040301, end: 20040401
  5. ZITHROMAX [Suspect]
     Indication: INTERSTITIAL LUNG DISEASE
     Dosage: SEE IMAGE
     Route: 048
     Dates: start: 20040301, end: 20040401
  6. ZITHROMAX [Suspect]
     Indication: VIRAL INFECTION
     Dosage: SEE IMAGE
     Route: 048
     Dates: start: 20040301, end: 20040401
  7. IMMUNOGLOBULINS (IMMUNOGLOBULINS) [Concomitant]
  8. CORTISONE (CORTISONE) [Concomitant]
  9. ANTIBIOTICS (ANTIBIOTICS) [Concomitant]

REACTIONS (14)
  - ACUTE RESPIRATORY DISTRESS SYNDROME [None]
  - ASTHENIA [None]
  - CYTOLYTIC HEPATITIS [None]
  - DISSEMINATED INTRAVASCULAR COAGULATION [None]
  - DYSPNOEA [None]
  - EXANTHEM [None]
  - HAEMORRHAGE [None]
  - HEPATIC ATROPHY [None]
  - HEPATIC FAILURE [None]
  - HEPATOCELLULAR DAMAGE [None]
  - INTERSTITIAL LUNG DISEASE [None]
  - PARALYSIS [None]
  - PROTHROMBIN TIME PROLONGED [None]
  - VARICELLA [None]
